FAERS Safety Report 6345751-7 (Version None)
Quarter: 2009Q3

REPORT INFORMATION
  Report Type: 
  Country: None (occurrence: None)
  Receive Date: 20090909
  Receipt Date: 20090902
  Transmission Date: 20100115
  Serious: Yes (Life-Threatening, Hospitalization)
  Sender: FDA-Public Use
  Company Number: GB-TEVA-208241ISR

PATIENT
  Age: 85 Year
  Sex: Female

DRUGS (1)
  1. WARFARIN SODIUM [Suspect]
     Indication: AORTIC VALVE REPLACEMENT
     Route: 048

REACTIONS (3)
  - AORTIC ANEURYSM [None]
  - HYPOVOLAEMIC SHOCK [None]
  - RETROPERITONEAL HAEMATOMA [None]
